FAERS Safety Report 6967427-5 (Version None)
Quarter: 2010Q3

REPORT INFORMATION
  Report Type: 
  Country: None (occurrence: None)
  Receive Date: 20100907
  Receipt Date: 20100826
  Transmission Date: 20110219
  Serious: Yes (Other)
  Sender: FDA-Public Use
  Company Number: BR-ELI_LILLY_AND_COMPANY-BR201008003101

PATIENT
  Age: 45 Year
  Sex: Female

DRUGS (6)
  1. HUMALOG [Suspect]
     Dosage: UNK, UNKNOWN
     Route: 065
     Dates: start: 20100701
  2. GALVUS [Concomitant]
     Dosage: 50 MG, 2/D
     Route: 065
  3. ASPIRIN [Concomitant]
     Dosage: 100 MG, DAILY (1/D)
     Route: 065
  4. SINVASTATINA [Concomitant]
     Dosage: 20 MG, DAILY (1/D)
     Route: 065
  5. PANTOPRAZOLE SODIUM [Concomitant]
     Dosage: 40 MG, DAILY (1/D)
     Route: 065
  6. OLCADIL [Concomitant]
     Dosage: 1 MG, DAILY (1/D)
     Route: 065

REACTIONS (2)
  - HYPERGLYCAEMIA [None]
  - WRONG TECHNIQUE IN DRUG USAGE PROCESS [None]
